FAERS Safety Report 5389675-0 (Version None)
Quarter: 2007Q3

REPORT INFORMATION
  Report Type: 
  Country: None (occurrence: None)
  Receive Date: 20070717
  Receipt Date: 20070703
  Transmission Date: 20080115
  Serious: Yes (Other)
  Sender: FDA-Public Use
  Company Number: PT-AMGEN-US233956

PATIENT
  Age: 51 Year
  Sex: Male

DRUGS (2)
  1. ENBREL [Suspect]
     Indication: SERONEGATIVE ARTHRITIS
     Dosage: 50 MG EVERY
     Dates: start: 20070501
  2. METHOTREXATE [Concomitant]

REACTIONS (5)
  - CHILLS [None]
  - NIGHT SWEATS [None]
  - PRODUCTIVE COUGH [None]
  - PYREXIA [None]
  - TUBERCULOSIS [None]
